FAERS Safety Report 18194282 (Version 2)
Quarter: 2020Q3

REPORT INFORMATION
  Report Type: Report from Study
  Country: US (occurrence: US)
  Receive Date: 20200825
  Receipt Date: 20200831
  Transmission Date: 20201103
  Serious: No
  Sender: FDA-Public Use
  Company Number: US-IPSEN BIOPHARMACEUTICALS, INC.-2020-14974

PATIENT
  Age: 13 Year
  Sex: Male
  Weight: 34.9 kg

DRUGS (2)
  1. INCRELEX [Suspect]
     Active Substance: MECASERMIN
     Indication: PRIMARY INSULIN LIKE GROWTH FACTOR-1 DEFICIENCY
     Dosage: INCRELEX 40MG (10MG/ML), 40 MG = 40000 MCG
     Route: 058
     Dates: start: 20200624
  2. INCRELEX [Suspect]
     Active Substance: MECASERMIN
     Dosage: INCRELEX 40MG (10MG/ML), 9 MG = 9000 MCG
     Route: 058
     Dates: start: 20200714

REACTIONS (1)
  - Nose deformity [Not Recovered/Not Resolved]
